FAERS Safety Report 9449296 (Version 3)
Quarter: 2014Q2

REPORT INFORMATION
  Report Type: Spontaneous
  Country: CA (occurrence: CA)
  Receive Date: 20130808
  Receipt Date: 20140414
  Transmission Date: 20141212
  Serious: Yes (Hospitalization)
  Sender: FDA-Public Use
  Company Number: CA-PFIZER INC-2013230469

PATIENT
  Age: 49 Year
  Sex: Female
  Weight: 85.8 kg

DRUGS (1)
  1. DETROL LA [Suspect]
     Dosage: 2 X 4 MG (TOTAL 8 MG), 2X/DAY
     Route: 048

REACTIONS (2)
  - Asthenia [Unknown]
  - Fall [Unknown]
